FAERS Safety Report 9980805 (Version 1)
Quarter: 2014Q1

REPORT INFORMATION
  Report Type: Spontaneous
  Country: IL (occurrence: IL)
  Receive Date: 20140307
  Receipt Date: 20140307
  Transmission Date: 20141002
  Serious: Yes (Hospitalization, Disabling, Other)
  Sender: FDA-Public Use
  Company Number: IL-009507513-1403ISR001095

PATIENT
  Age: 73 Year
  Sex: Female

DRUGS (4)
  1. ALENDRONATE SODIUM [Suspect]
     Indication: OSTEOPOROSIS
     Route: 048
  2. ZOLEDRONIC ACID [Suspect]
     Indication: OSTEOPOROSIS
     Route: 042
  3. VITAMIN D (UNSPECIFIED) [Concomitant]
  4. RALOXIFENE HYDROCHLORIDE [Concomitant]

REACTIONS (1)
  - Femur fracture [Recovered/Resolved]
